FAERS Safety Report 16438275 (Version 1)
Quarter: 2019Q2

REPORT INFORMATION
  Report Type: Spontaneous
  Country: US (occurrence: US)
  Receive Date: 20190617
  Receipt Date: 20190617
  Transmission Date: 20190711
  Serious: Yes (Other)
  Sender: FDA-Public Use
  Company Number: US-LUPIN PHARMACEUTICALS INC.-2019-03629

PATIENT
  Age: 53 Year
  Sex: Female

DRUGS (1)
  1. NIACIN. [Suspect]
     Active Substance: NIACIN
     Indication: PRODUCT USED FOR UNKNOWN INDICATION
     Dosage: UNK
     Route: 048

REACTIONS (18)
  - Erythema [Recovered/Resolved]
  - Rash [Recovered/Resolved]
  - Heart rate increased [Recovered/Resolved]
  - Blood lactic acid increased [Recovered/Resolved]
  - Body temperature increased [Recovered/Resolved]
  - Nausea [Recovered/Resolved]
  - Dizziness [Recovered/Resolved]
  - Hyperventilation [Recovered/Resolved]
  - Anion gap increased [Recovered/Resolved]
  - Tremor [Recovered/Resolved]
  - Pruritus [Recovered/Resolved]
  - Overdose [Unknown]
  - Anxiety [Recovered/Resolved]
  - Hot flush [Recovered/Resolved]
  - Panic disorder [Recovered/Resolved]
  - Blood pressure diastolic decreased [Recovered/Resolved]
  - Skin burning sensation [Recovered/Resolved]
  - Blood urea increased [Recovered/Resolved]
